FAERS Safety Report 18769839 (Version 1)
Quarter: 2021Q1

REPORT INFORMATION
  Report Type: Spontaneous
  Country: ES (occurrence: ES)
  Receive Date: 20210121
  Receipt Date: 20210121
  Transmission Date: 20210419
  Serious: Yes (Other)
  Sender: FDA-Public Use
  Company Number: ES-TEVA-2021-ES-1871350

PATIENT
  Age: 53 Year
  Sex: Male
  Weight: 54.6 kg

DRUGS (1)
  1. VORICONAZOL (2878A) [Suspect]
     Active Substance: VORICONAZOLE
     Indication: FUNGAL INFECTION
     Dosage: 8/29 AT 7:00 P.M. 400 MG, 8/30 6 H 400 MG, 8/30 6:00 P.M. 200 MG, 8/30 11:00 P.M. 200 MG, 8/31 AT 8:
     Route: 042
     Dates: start: 20200829, end: 20200901

REACTIONS (3)
  - Tremor [Recovered/Resolved]
  - Medication error [Recovered/Resolved]
  - Myoclonus [Recovered/Resolved]

NARRATIVE: CASE EVENT DATE: 20200830
